FAERS Safety Report 8916850 (Version 3)
Quarter: 2013Q2

REPORT INFORMATION
  Report Type: Spontaneous
  Country: US (occurrence: US)
  Receive Date: 20121120
  Receipt Date: 20130502
  Transmission Date: 20140414
  Serious: No
  Sender: FDA-Public Use
  Company Number: US-009507513-1211USA005207

PATIENT
  Sex: Female

DRUGS (2)
  1. PEGINTRON [Suspect]
     Indication: HEPATITIS C
     Dosage: UNK
     Route: 058
     Dates: start: 20121031
  2. REBETOL [Suspect]
     Indication: HEPATITIS C
     Dosage: UNK
     Route: 048
     Dates: start: 20121031

REACTIONS (11)
  - Agitation [Unknown]
  - Nausea [Unknown]
  - Headache [Unknown]
  - Drug ineffective [Unknown]
  - Drug ineffective [Unknown]
  - Skin disorder [Unknown]
  - Asthenia [Unknown]
  - Memory impairment [Unknown]
  - Alopecia [Unknown]
  - Therapeutic response decreased [Unknown]
  - Hypoaesthesia [Unknown]
